FAERS Safety Report 12981366 (Version 3)
Quarter: 2018Q1

REPORT INFORMATION
  Report Type: Report from Study
  Country: None (occurrence: US)
  Receive Date: 20161129
  Receipt Date: 20180208
  Transmission Date: 20180508
  Serious: Yes (Hospitalization, Other)
  Sender: FDA-Public Use
  Company Number: US-ABBVIE-16K-163-1748666-00

PATIENT
  Age: 62 Year
  Sex: Female
  Weight: 81.72 kg

DRUGS (3)
  1. HUMIRA [Suspect]
     Active Substance: ADALIMUMAB
     Indication: CROHN^S DISEASE
     Route: 058
     Dates: start: 201611
  2. HUMIRA [Suspect]
     Active Substance: ADALIMUMAB
     Indication: PSORIATIC ARTHROPATHY
     Route: 058
     Dates: start: 2005, end: 201609
  3. HYDROXYZINE [Concomitant]
     Active Substance: HYDROXYZINE HYDROCHLORIDE
     Indication: SYSTEMIC MASTOCYTOSIS

REACTIONS (11)
  - Exostosis [Unknown]
  - Foot operation [Unknown]
  - Cyst rupture [Recovering/Resolving]
  - Foot deformity [Recovering/Resolving]
  - Thyroid mass [Recovering/Resolving]
  - Swelling [Recovering/Resolving]
  - Arthralgia [Recovering/Resolving]
  - Goitre [Recovering/Resolving]
  - Neck pain [Recovered/Resolved]
  - Neuropathy peripheral [Unknown]
  - Pain in extremity [Unknown]

NARRATIVE: CASE EVENT DATE: 2007
